FAERS Safety Report 5128552-7 (Version None)
Quarter: 2006Q4

REPORT INFORMATION
  Report Type: 
  Country: None (occurrence: None)
  Receive Date: 20061017
  Receipt Date: 20060825
  Transmission Date: 20070319
  Serious: Yes (Hospitalization)
  Sender: FDA-Public Use
  Company Number: US-GLAXOSMITHKLINE-A0618086A

PATIENT
  Age: 54 Year
  Sex: Male

DRUGS (5)
  1. ADVAIR DISKUS 100/50 [Suspect]
     Indication: ASTHMA
     Dosage: 1PUFF TWICE PER DAY
     Route: 055
     Dates: start: 20020101
  2. SEREVENT [Suspect]
     Indication: ASTHMA
     Dosage: 1PUFF PER DAY
     Route: 055
     Dates: start: 20000101
  3. RYTHMOL [Concomitant]
  4. ATENOLOL [Concomitant]
     Indication: ATRIAL FIBRILLATION
  5. VERAPAMIL [Concomitant]
     Indication: ATRIAL FIBRILLATION

REACTIONS (3)
  - ASTHMA [None]
  - HEART RATE INCREASED [None]
  - WEIGHT DECREASED [None]
